FAERS Safety Report 8811604 (Version 1)
Quarter: 2012Q4

REPORT INFORMATION
  Report Type: Report from Study
  Country: BR (occurrence: BR)
  Receive Date: 20120927
  Receipt Date: 20120927
  Transmission Date: 20130627
  Serious: Yes (Hospitalization, Other)
  Sender: FDA-Public Use
  Company Number: BR-PFIZER INC-2012236462

PATIENT
  Age: 62 Year
  Sex: Female
  Weight: 56 kg

DRUGS (1)
  1. LIPITOR [Suspect]
     Indication: BLOOD CHOLESTEROL
     Dosage: 20 mg, 1x/day (one tablet once a day)
     Route: 048
     Dates: start: 20110930, end: 201111

REACTIONS (2)
  - Cardiac disorder [Unknown]
  - Feeling abnormal [Unknown]
